FAERS Safety Report 14257631 (Version 1)
Quarter: 2017Q4

REPORT INFORMATION
  Report Type: Spontaneous
  Country: US (occurrence: US)
  Receive Date: 20171207
  Receipt Date: 20171207
  Transmission Date: 20180321
  Serious: Yes (Other)
  Sender: FDA-Public Use
  Company Number: US-BEH-2017085599

PATIENT
  Sex: Female
  Weight: 97.51 kg

DRUGS (19)
  1. HIZENTRA [Suspect]
     Active Substance: HUMAN IMMUNOGLOBULIN G
     Indication: SELECTIVE IGG SUBCLASS DEFICIENCY
     Dosage: 72 G, UNK
     Route: 058
     Dates: start: 20130924
  2. HIZENTRA [Suspect]
     Active Substance: HUMAN IMMUNOGLOBULIN G
     Dosage: UNK
     Route: 058
  3. GLIPIZIDE. [Concomitant]
     Active Substance: GLIPIZIDE
  4. DULERA [Concomitant]
     Active Substance: FORMOTEROL FUMARATE DIHYDRATE\MOMETASONE FUROATE
  5. ZETIA [Concomitant]
     Active Substance: EZETIMIBE
  6. CLONAZEPAM. [Concomitant]
     Active Substance: CLONAZEPAM
  7. ALBUTEROL                          /00139501/ [Concomitant]
     Active Substance: ALBUTEROL
  8. FLUCONAZOLE. [Concomitant]
     Active Substance: FLUCONAZOLE
  9. NYSTATIN. [Concomitant]
     Active Substance: NYSTATIN
  10. NASONEX [Concomitant]
     Active Substance: MOMETASONE FUROATE
  11. BYSTOLIC [Concomitant]
     Active Substance: NEBIVOLOL HYDROCHLORIDE
  12. ONDANSETRON [Concomitant]
     Active Substance: ONDANSETRON
  13. NEXIUM [Concomitant]
     Active Substance: ESOMEPRAZOLE MAGNESIUM
  14. AUGMENTIN [Concomitant]
     Active Substance: AMOXICILLIN\CLAVULANATE POTASSIUM
  15. BUPROPION. [Concomitant]
     Active Substance: BUPROPION
  16. RANITIDINE. [Concomitant]
     Active Substance: RANITIDINE
  17. LEVOCETIRIZINE [Concomitant]
     Active Substance: LEVOCETIRIZINE
  18. DIOVAN [Concomitant]
     Active Substance: VALSARTAN
  19. OXYCODONE [Concomitant]
     Active Substance: OXYCODONE

REACTIONS (3)
  - Sinusitis [Unknown]
  - Nephrolithiasis [Unknown]
  - Protein urine present [Unknown]
